FAERS Safety Report 8224803-0 (Version None)
Quarter: 2012Q1

REPORT INFORMATION
  Report Type: 
  Country: None (occurrence: None)
  Receive Date: 20120321
  Receipt Date: 20120319
  Transmission Date: 20120608
  Serious: Yes (Hospitalization)
  Sender: FDA-Public Use
  Company Number: IT-ROCHE-1050505

PATIENT
  Sex: Male

DRUGS (3)
  1. OMEPRAZOLE [Concomitant]
  2. CLONAZEPAM [Suspect]
     Indication: SUICIDE ATTEMPT
     Dosage: 2 MG TABS
     Route: 048
     Dates: start: 20120317, end: 20120317
  3. TRAZODONE HCL [Suspect]
     Indication: SUICIDE ATTEMPT
     Dosage: 50 MG TABS
     Route: 048
     Dates: start: 20120317, end: 20120317

REACTIONS (2)
  - BRADYPHRENIA [None]
  - BRADYKINESIA [None]
